FAERS Safety Report 9678863 (Version 1)
Quarter: 2013Q4

REPORT INFORMATION
  Report Type: Spontaneous
  Country: US (occurrence: US)
  Receive Date: 20131108
  Receipt Date: 20131108
  Transmission Date: 20140711
  Serious: No
  Sender: FDA-Public Use
  Company Number: US-BAYER-2013-136224

PATIENT
  Sex: Female

DRUGS (3)
  1. MIDOL EXTENDED RELIEF CAPLET [Suspect]
     Dosage: UNK
  2. ADVIL [Suspect]
  3. TYLENOL [PARACETAMOL] [Suspect]

REACTIONS (1)
  - Drug ineffective [None]
